FAERS Safety Report 20584635 (Version 1)
Quarter: 2022Q1

REPORT INFORMATION
  Report Type: Spontaneous
  Country: AU (occurrence: AU)
  Receive Date: 20220311
  Receipt Date: 20220311
  Transmission Date: 20220423
  Serious: Yes (Hospitalization)
  Sender: FDA-Public Use
  Company Number: AU-TEVA-2022-AU-2008108

PATIENT
  Age: 40 Year
  Sex: Female

DRUGS (6)
  1. FENTANYL CITRATE [Suspect]
     Active Substance: FENTANYL CITRATE
     Route: 065
  2. ATRACURIUM [Suspect]
     Active Substance: ATRACURIUM
     Route: 065
  3. ISOFLURANE [Suspect]
     Active Substance: ISOFLURANE
     Route: 065
  4. MORPHINE [Suspect]
     Active Substance: MORPHINE
     Route: 065
  5. ACETAMINOPHEN [Suspect]
     Active Substance: ACETAMINOPHEN
     Indication: Procedural pain
     Route: 048
  6. THIOPENTAL SODIUM [Suspect]
     Active Substance: THIOPENTAL SODIUM
     Route: 065

REACTIONS (2)
  - Acute hepatic failure [Recovering/Resolving]
  - Drug level increased [Recovering/Resolving]
